FAERS Safety Report 21681724 (Version 6)
Quarter: 2023Q1

REPORT INFORMATION
  Report Type: Report from Study
  Country: MX (occurrence: MX)
  Receive Date: 20221205
  Receipt Date: 20230317
  Transmission Date: 20230418
  Serious: Yes (Other)
  Sender: FDA-Public Use
  Company Number: MX-002147023-NVSC2022MX161580

PATIENT
  Sex: Female
  Weight: 69 kg

DRUGS (2)
  1. KISQALI [Suspect]
     Active Substance: RIBOCICLIB
     Indication: Breast cancer
     Dosage: UNK (2 WEEKS AGO)
     Route: 048
  2. KISQALI [Suspect]
     Active Substance: RIBOCICLIB
     Dosage: UNK
     Route: 048

REACTIONS (25)
  - Neoplasm [Unknown]
  - Second primary malignancy [Unknown]
  - Wound haemorrhage [Unknown]
  - Weight increased [Unknown]
  - Hypoacusis [Recovering/Resolving]
  - Ear inflammation [Not Recovered/Not Resolved]
  - Limb injury [Unknown]
  - Limb discomfort [Not Recovered/Not Resolved]
  - Joint injury [Recovered/Resolved]
  - Joint swelling [Not Recovered/Not Resolved]
  - Gait disturbance [Unknown]
  - Fear [Unknown]
  - Hair disorder [Unknown]
  - Influenza [Unknown]
  - Osteoporosis [Unknown]
  - Nervousness [Unknown]
  - Dysphonia [Unknown]
  - Synovial cyst [Unknown]
  - Insomnia [Unknown]
  - Dysmorphism [Unknown]
  - Feeling abnormal [Unknown]
  - Hair texture abnormal [Unknown]
  - Alopecia [Not Recovered/Not Resolved]
  - Cough [Unknown]
  - Peripheral swelling [Not Recovered/Not Resolved]
